FAERS Safety Report 8501909-X (Version None)
Quarter: 2012Q3

REPORT INFORMATION
  Report Type: 
  Country: None (occurrence: None)
  Receive Date: 20120711
  Receipt Date: 20120706
  Transmission Date: 20120928
  Serious: Yes (Other)
  Sender: FDA-Public Use
  Company Number: PHHY2012TN058726

PATIENT
  Sex: Male

DRUGS (1)
  1. EXFORGE [Suspect]
     Indication: HYPERTENSION
     Dosage: 1 DF (160 MG VAL/ 5 MG AMLO) DAILY
     Route: 048
     Dates: start: 20120523, end: 20120524

REACTIONS (3)
  - DYSURIA [None]
  - ANXIETY [None]
  - PANIC REACTION [None]
